FAERS Safety Report 7054524-1 (Version None)
Quarter: 2010Q4

REPORT INFORMATION
  Report Type: 
  Country: None (occurrence: None)
  Receive Date: 20101015
  Receipt Date: 20101004
  Transmission Date: 20110411
  Serious: Yes (Hospitalization)
  Sender: FDA-Public Use
  Company Number: 2010SP002143

PATIENT
  Age: 66 Year
  Sex: Male
  Weight: 84.369 kg

DRUGS (21)
  1. ARFORMOTEROL TARTRATE [Suspect]
     Indication: CHRONIC OBSTRUCTIVE PULMONARY DISEASE
     Dosage: 15 UG; BID; INHALATION
     Route: 055
     Dates: start: 20100520
  2. SINGULAIR [Concomitant]
  3. FEXOFENADINE HCL [Concomitant]
  4. SIMVASTATIN [Concomitant]
  5. METOPROLOL [Concomitant]
  6. TRIAMTERENE [Concomitant]
  7. FLOMAX [Concomitant]
  8. PROTONIX [Concomitant]
  9. DRONEDARONE HCL [Concomitant]
  10. ALEVE (CAPLET) [Concomitant]
  11. FLAXSEED OIL [Concomitant]
  12. CALCIUM [Concomitant]
  13. ASCORBIC ACID [Concomitant]
  14. MULTI-VITAMINS [Concomitant]
  15. ATHRUZ MOVE FREE [Concomitant]
  16. VITAMIN D [Concomitant]
  17. VENTOLIN HFA [Concomitant]
  18. PULMICORT [Concomitant]
  19. MIRALAX [Concomitant]
  20. SYMBICORT [Concomitant]
  21. SALBUTAMOL [Concomitant]

REACTIONS (3)
  - ATELECTASIS [None]
  - PULMONARY FIBROSIS [None]
  - ROTATOR CUFF SYNDROME [None]
